FAERS Safety Report 10674817 (Version 1)
Quarter: 2014Q4

REPORT INFORMATION
  Report Type: Spontaneous
  Country: US (occurrence: None)
  Receive Date: 20141223
  Receipt Date: 20141223
  Transmission Date: 20150529
  Serious: Yes (Hospitalization)
  Sender: FDA-Public Use
  Company Number: None

PATIENT
  Age: 71 Year
  Sex: Female
  Weight: 75.52 kg

DRUGS (10)
  1. DAPSONE. [Concomitant]
     Active Substance: DAPSONE
  2. FLONASE [Concomitant]
     Active Substance: FLUTICASONE PROPIONATE
  3. CRANBERRY SUPPLEMENT [Concomitant]
  4. ESCITALOPRAM OXALATE. [Concomitant]
     Active Substance: ESCITALOPRAM OXALATE
  5. METOPROLOL SUCCINATE. [Concomitant]
     Active Substance: METOPROLOL SUCCINATE
  6. LEVETIRACETAM. [Concomitant]
     Active Substance: LEVETIRACETAM
  7. MAGIC MOUTHWASH [Concomitant]
     Active Substance: DIPHENHYDRAMINE HYDROCHLORIDE\LIDOCAINE HYDROCHLORIDE\NYSTATIN
  8. BRENTUXIMAB VEDOTIN [Suspect]
     Active Substance: BRENTUXIMAB VEDOTIN
     Indication: DIFFUSE LARGE B-CELL LYMPHOMA
     Route: 042
     Dates: start: 20141024
  9. LENALIDOMIDE [Concomitant]
     Active Substance: LENALIDOMIDE
     Indication: DIFFUSE LARGE B-CELL LYMPHOMA
     Dosage: QD DAYS 1-21
     Route: 048
     Dates: start: 20141024, end: 20141219
  10. LIDOCAINE CREAM [Concomitant]

REACTIONS (10)
  - Oropharyngeal pain [None]
  - Neck pain [None]
  - Fatigue [None]
  - Chills [None]
  - Asthenia [None]
  - Rhinorrhoea [None]
  - Streptococcus test positive [None]
  - Pyrexia [None]
  - Productive cough [None]
  - Blood culture positive [None]

NARRATIVE: CASE EVENT DATE: 20141221
